FAERS Safety Report 16449336 (Version 1)
Quarter: 2019Q2

REPORT INFORMATION
  Report Type: Spontaneous
  Country: MX (occurrence: MX)
  Receive Date: 20190619
  Receipt Date: 20190619
  Transmission Date: 20190711
  Serious: Yes (Hospitalization)
  Sender: FDA-Public Use
  Company Number: PHHY2019MX140194

PATIENT
  Age: 65 Year
  Sex: Female

DRUGS (1)
  1. TOPOTECAN [Suspect]
     Active Substance: TOPOTECAN HYDROCHLORIDE
     Indication: ENDOMETRIAL ADENOCARCINOMA
     Dosage: 4 MG, UNK
     Route: 065

REACTIONS (4)
  - White matter lesion [Recovered/Resolved]
  - Generalised tonic-clonic seizure [Recovered/Resolved]
  - Visual impairment [Unknown]
  - Posterior reversible encephalopathy syndrome [Recovered/Resolved]
